FAERS Safety Report 21964618 (Version 1)
Quarter: 2023Q1

REPORT INFORMATION
  Report Type: Spontaneous
  Country: US (occurrence: US)
  Receive Date: 20230207
  Receipt Date: 20230207
  Transmission Date: 20230417
  Serious: No
  Sender: FDA-Public Use
  Company Number: US-PURDUE PHARMA-USA-2022-0296693

PATIENT
  Age: 49 Year
  Sex: Female
  Weight: 75.29 kg

DRUGS (2)
  1. BUTRANS [Suspect]
     Active Substance: BUPRENORPHINE
     Indication: Analgesic therapy
     Dosage: 10 MCG/HR
     Route: 062
     Dates: start: 202107
  2. BUTRANS [Suspect]
     Active Substance: BUPRENORPHINE
     Dosage: 15 MCG/HR ONCE A WEEK
     Route: 062
     Dates: start: 202208

REACTIONS (2)
  - Vomiting [Unknown]
  - Drug ineffective [Unknown]
